FAERS Safety Report 16068315 (Version 1)
Quarter: 2019Q1

REPORT INFORMATION
  Report Type: Spontaneous
  Country: HU (occurrence: HU)
  Receive Date: 20190313
  Receipt Date: 20190313
  Transmission Date: 20190418
  Serious: Yes (Other)
  Sender: FDA-Public Use
  Company Number: HU-PFIZER INC-2019104265

PATIENT
  Age: 69 Year
  Sex: Female

DRUGS (11)
  1. ONDANSETRON [Suspect]
     Active Substance: ONDANSETRON
     Indication: PREMEDICATION
     Dosage: 8 MG, CYCLIC
     Route: 042
     Dates: start: 20180801, end: 20181121
  2. CALCIUM FOLINATE [Concomitant]
     Active Substance: LEUCOVORIN CALCIUM
     Indication: COLON CANCER
     Dosage: 340MG PER 2 WEEKS ON THE FIRST AND SECOND DAY OF THE THERAPY
     Route: 042
     Dates: start: 20180801, end: 20181121
  3. OXALIPLATIN. [Suspect]
     Active Substance: OXALIPLATIN
     Indication: COLON CANCER
     Dosage: 110 MG, EVERY 2 WEEKS
     Route: 042
     Dates: start: 20180801, end: 20181121
  4. SUPRASTIN [Suspect]
     Active Substance: CHLOROPYRAMINE HYDROCHLORIDE
     Indication: PREMEDICATION
     Dosage: 2 MILLILITER PER CHEMOTHERAPY
     Route: 042
     Dates: start: 20180801, end: 20181121
  5. KARBIS [Concomitant]
     Active Substance: CANDESARTAN CILEXETIL
     Indication: HYPERTENSION
     Dosage: 8 MG, 1X/DAY
     Route: 048
  6. CONCOR [Concomitant]
     Active Substance: BISOPROLOL FUMARATE
     Indication: PULSE ABNORMAL
     Dosage: 2.5 MG, 1X/DAY
     Route: 048
  7. MAGNEROT [MAGNESIUM OROTATE] [Concomitant]
     Indication: PROPHYLAXIS
     Dosage: 1X1
     Route: 048
  8. SOLU-MEDROL [Suspect]
     Active Substance: METHYLPREDNISOLONE SODIUM SUCCINATE
     Indication: PREMEDICATION
     Dosage: 125MG PER CHEMOTHERAPY
     Route: 042
     Dates: start: 20180801, end: 20181121
  9. BENFOGAMMA [Concomitant]
     Indication: PROPHYLAXIS
     Dosage: 50 MG, EVERY 12 HOURS (NUMER OF UNITS IN THE INTERVAL:12, DEFINITION OF THE INTERVAL: HOUR)
     Route: 048
  10. ERBITUX [Concomitant]
     Active Substance: CETUXIMAB
     Indication: COLON CANCER
     Dosage: 800 MG, EVERY 2 WEEKS
     Route: 042
     Dates: end: 20181121
  11. FLUOROURACIL. [Concomitant]
     Active Substance: FLUOROURACIL
     Indication: COLON CANCER
     Dosage: 680MG BOLUS + 1020MG  INFUSION( DURING 22 HOURS) PER 2 WEEKS ON THE FIRST AND THE SECOND DAY OF T..
     Route: 042
     Dates: start: 20180801, end: 20181121

REACTIONS (5)
  - Chills [Recovered/Resolved]
  - Thrombocytopenia [Not Recovered/Not Resolved]
  - Palpitations [Recovered/Resolved]
  - Flushing [Recovered/Resolved]
  - Pruritus [Recovered/Resolved]

NARRATIVE: CASE EVENT DATE: 20180912
